FAERS Safety Report 15081240 (Version 1)
Quarter: 2018Q2

REPORT INFORMATION
  Report Type: Spontaneous
  Country: US (occurrence: US)
  Receive Date: 20180628
  Receipt Date: 20180628
  Transmission Date: 20180711
  Serious: Yes (Hospitalization, Other)
  Sender: FDA-Public Use
  Company Number: US-ACCORD-064346

PATIENT
  Age: 41 Year
  Sex: Female
  Weight: 65.77 kg

DRUGS (1)
  1. CLONAZEPAM ACCORD [Suspect]
     Active Substance: CLONAZEPAM
     Indication: PRODUCT USED FOR UNKNOWN INDICATION
     Dosage: STRENGTH: 2 MG
     Route: 048

REACTIONS (8)
  - Feeling abnormal [Unknown]
  - Withdrawal syndrome [Unknown]
  - Product quality issue [Unknown]
  - Formication [Unknown]
  - Product substitution issue [Unknown]
  - Seizure [Unknown]
  - Hyperhidrosis [Unknown]
  - Feeling cold [Unknown]
